FAERS Safety Report 5566528-6 (Version None)
Quarter: 2007Q4

REPORT INFORMATION
  Report Type: 
  Country: None (occurrence: None)
  Receive Date: 20071219
  Receipt Date: 20071206
  Transmission Date: 20080405
  Serious: Yes (Other)
  Sender: FDA-Public Use
  Company Number: AT-GENENTECH-252755

PATIENT
  Sex: Female
  Weight: 82 kg

DRUGS (21)
  1. BEVACIZUMAB [Suspect]
     Indication: NON-SMALL CELL LUNG CANCER
     Dosage: 1230 MG, Q3W
     Route: 042
     Dates: start: 20070428
  2. CARBOPLATIN [Suspect]
     Indication: NON-SMALL CELL LUNG CANCER
     Dosage: 150 MG, Q3W
     Route: 042
     Dates: start: 20070428
  3. NAVELBINE [Suspect]
     Indication: NON-SMALL CELL LUNG CANCER
     Dosage: 50 MG, Q3W
     Route: 042
     Dates: start: 20070428
  4. FENTANYL [Concomitant]
     Indication: DRUG USE FOR UNKNOWN INDICATION
     Dates: start: 20070425
  5. VENDAL [Concomitant]
     Indication: DRUG USE FOR UNKNOWN INDICATION
  6. CAL-D-VITA [Concomitant]
     Indication: DRUG USE FOR UNKNOWN INDICATION
     Dates: start: 20070424
  7. ACTONEL [Concomitant]
     Indication: DRUG USE FOR UNKNOWN INDICATION
     Dates: start: 20070424
  8. MEXALEN [Concomitant]
     Indication: DRUG USE FOR UNKNOWN INDICATION
     Dates: start: 20070629
  9. SEROPRAM [Concomitant]
     Indication: DRUG USE FOR UNKNOWN INDICATION
     Dates: start: 20070720
  10. LYRICA [Concomitant]
     Indication: DRUG USE FOR UNKNOWN INDICATION
     Dates: start: 20070720, end: 20070908
  11. ERYPO [Concomitant]
     Indication: DRUG USE FOR UNKNOWN INDICATION
     Dates: start: 20070612
  12. ZANEDIP [Concomitant]
     Indication: DRUG USE FOR UNKNOWN INDICATION
  13. CONCOR [Concomitant]
     Indication: DRUG USE FOR UNKNOWN INDICATION
  14. PANTOLOC [Concomitant]
     Indication: DRUG USE FOR UNKNOWN INDICATION
  15. NOZINAN [Concomitant]
     Indication: DRUG USE FOR UNKNOWN INDICATION
  16. SYMBICORT [Concomitant]
     Indication: DRUG USE FOR UNKNOWN INDICATION
     Dosage: UNK, UNK
     Dates: start: 20070424
  17. IMPORTAL [Concomitant]
     Indication: DRUG USE FOR UNKNOWN INDICATION
     Dates: start: 20070425
  18. LOVENOX [Concomitant]
     Indication: DRUG USE FOR UNKNOWN INDICATION
     Dates: start: 20070424
  19. LAEVOLAC [Concomitant]
     Indication: DRUG USE FOR UNKNOWN INDICATION
     Dates: start: 20070809
  20. SUCRALFATE [Concomitant]
     Indication: DRUG USE FOR UNKNOWN INDICATION
     Dates: start: 20070823, end: 20070908
  21. MOVALIS [Concomitant]
     Indication: DRUG USE FOR UNKNOWN INDICATION
     Dates: start: 20070829, end: 20070908

REACTIONS (2)
  - ANAEMIA [None]
  - THROMBOCYTOPENIA [None]
